FAERS Safety Report 14701523 (Version 1)
Quarter: 2018Q1

REPORT INFORMATION
  Report Type: Spontaneous
  Country: US (occurrence: US)
  Receive Date: 20180330
  Receipt Date: 20180330
  Transmission Date: 20180509
  Serious: No
  Sender: FDA-Public Use
  Company Number: US-DRREDDYS-USA/USA/17/0091743

PATIENT
  Age: 37 Year
  Sex: Female
  Weight: 96.61 kg

DRUGS (1)
  1. SUMATRIPTAN. [Suspect]
     Active Substance: SUMATRIPTAN
     Indication: MIGRAINE
     Route: 065
     Dates: start: 20170621

REACTIONS (2)
  - Drug dose omission [Unknown]
  - Product physical issue [Unknown]

NARRATIVE: CASE EVENT DATE: 20170621
